FAERS Safety Report 6231722-8 (Version None)
Quarter: 2009Q2

REPORT INFORMATION
  Report Type: 
  Country: None (occurrence: None)
  Receive Date: 20090616
  Receipt Date: 20090507
  Transmission Date: 20091009
  Serious: Yes (Other)
  Sender: FDA-Public Use
  Company Number: JP-PFIZER INC-2009223299

PATIENT
  Age: 54 Year

DRUGS (5)
  1. CELECOX [Suspect]
     Dosage: 200 MG, UNKNOWN/D
     Route: 048
     Dates: start: 20080414, end: 20090330
  2. METHOTREXATE [Concomitant]
     Dosage: UNK
     Route: 048
  3. PREDONINE [Concomitant]
     Dosage: UNK
  4. CIMETIDINE [Concomitant]
     Dosage: UNK
  5. DICLOFENAC SODIUM [Concomitant]
     Dosage: UNK
     Route: 054
     Dates: start: 20090105

REACTIONS (1)
  - DUODENAL ULCER [None]
